FAERS Safety Report 8799512 (Version 1)
Quarter: 2012Q4

REPORT INFORMATION
  Report Type: Spontaneous
  Country: DE (occurrence: None)
  Receive Date: 20120914
  Receipt Date: 20120914
  Transmission Date: 20130627
  Serious: Yes (Other)
  Sender: FDA-Public Use
  Company Number: GER/GER/12/025783

PATIENT
  Age: 37 Year
  Sex: Female
  Weight: 79.5 kg

DRUGS (3)
  1. FLUOXETINE [Suspect]
     Indication: BORDERLINE PERSONALITY DISORDER
     Route: 048
     Dates: start: 20091113
  2. FOLIO FORTE (FOLIO) [Concomitant]
  3. UTROGEST (PROGESTERONE) [Concomitant]

REACTIONS (4)
  - Cervical incompetence [None]
  - Premature rupture of membranes [None]
  - Exposure during pregnancy [None]
  - Labour induction [None]
